FAERS Safety Report 19581102 (Version 1)
Quarter: 2021Q3

REPORT INFORMATION
  Report Type: Spontaneous
  Country: US (occurrence: US)
  Receive Date: 20210720
  Receipt Date: 20210720
  Transmission Date: 20211014
  Serious: Yes (Hospitalization)
  Sender: FDA-Public Use
  Company Number: US-STRIDES ARCOLAB LIMITED-2020SP008759

PATIENT
  Age: 56 Year
  Sex: Male

DRUGS (8)
  1. MYCOPHENOLATE MOFETIL. [Suspect]
     Active Substance: MYCOPHENOLATE MOFETIL
     Indication: RENAL TRANSPLANT
     Dosage: 1000 MILLIGRAM DAILY
     Route: 065
  2. PREDNISOLONE. [Suspect]
     Active Substance: PREDNISOLONE
     Indication: HEART TRANSPLANT
     Dosage: 100 MILLIGRAM
     Route: 065
     Dates: start: 2020
  3. MYCOPHENOLATE MOFETIL. [Suspect]
     Active Substance: MYCOPHENOLATE MOFETIL
     Dosage: 500 MILLIGRAM DAILY
     Route: 065
  4. TACROLIMUS. [Suspect]
     Active Substance: TACROLIMUS
     Indication: RENAL TRANSPLANT
     Dosage: DOSE REDUCED TO TROUGH GOAL OF 5?8 MICROGRAM/ML
     Route: 065
  5. MYCOPHENOLATE MOFETIL. [Suspect]
     Active Substance: MYCOPHENOLATE MOFETIL
     Indication: HEART TRANSPLANT
     Dosage: 2000 MILLIGRAM, DAILY
     Route: 065
     Dates: start: 2020
  6. PREDNISOLONE. [Suspect]
     Active Substance: PREDNISOLONE
     Indication: RENAL TRANSPLANT
     Dosage: 5 MILLIGRAM,DAILY
     Route: 065
  7. ADRIAMYCIN [Concomitant]
     Active Substance: DOXORUBICIN HYDROCHLORIDE
     Indication: PRODUCT USED FOR UNKNOWN INDICATION
     Dosage: UNK
     Route: 065
  8. TACROLIMUS. [Suspect]
     Active Substance: TACROLIMUS
     Indication: HEART TRANSPLANT
     Dosage: UNK
     Route: 065
     Dates: start: 2020

REACTIONS (23)
  - Staphylococcal infection [Unknown]
  - Renal tubular necrosis [Unknown]
  - Pneumonia klebsiella [Unknown]
  - Morganella infection [Unknown]
  - Abdominal pain lower [Unknown]
  - Malnutrition [Unknown]
  - Polyomavirus viraemia [Unknown]
  - Hyperkalaemia [Unknown]
  - Stenotrophomonas infection [Unknown]
  - COVID-19 [Unknown]
  - Respiratory failure [Unknown]
  - Cough [Unknown]
  - Pulmonary oedema [Unknown]
  - Pneumonia [Unknown]
  - Pyrexia [Unknown]
  - Pleural effusion [Unknown]
  - Leukocytosis [Unknown]
  - Corynebacterium infection [Unknown]
  - Enterococcal infection [Unknown]
  - Urinoma [Unknown]
  - Respiratory distress [Unknown]
  - Complications of transplanted kidney [Unknown]
  - Oliguria [Unknown]
